FAERS Safety Report 9822101 (Version 3)
Quarter: 2014Q1

REPORT INFORMATION
  Report Type: Spontaneous
  Country: US (occurrence: US)
  Receive Date: 20140116
  Receipt Date: 20140127
  Transmission Date: 20141002
  Serious: Yes (Other)
  Sender: FDA-Public Use
  Company Number: PHHY2013US150959

PATIENT
  Sex: Female

DRUGS (4)
  1. LIORESAL INTRATECAL [Suspect]
     Indication: MUSCLE SPASTICITY
     Dosage: 424.82 UG/DAY (CONCENTRATION 500 UG/ML)
     Route: 037
     Dates: start: 2007
  2. LIORESAL INTRATECAL [Suspect]
     Dosage: 460 UG/DAY (CONCENTRATION 2000 UG/ML)
     Route: 037
     Dates: start: 20131211
  3. BACLOFEN [Suspect]
     Dosage: UNK UKN, UNK
     Route: 048
  4. TIZANIDINE [Suspect]
     Dosage: UNK UKN, UNK
     Route: 048

REACTIONS (5)
  - Peripheral nerve palsy [Recovering/Resolving]
  - Neuropathy peripheral [Recovering/Resolving]
  - Gait spastic [Recovering/Resolving]
  - Muscular weakness [Recovering/Resolving]
  - Muscle spasticity [Recovering/Resolving]
